FAERS Safety Report 6653630-0 (Version None)
Quarter: 2010Q1

REPORT INFORMATION
  Report Type: 
  Country: None (occurrence: None)
  Receive Date: 20100324
  Receipt Date: 20100309
  Transmission Date: 20100710
  Serious: Yes (Hospitalization)
  Sender: FDA-Public Use
  Company Number: SPV1-2010-00101

PATIENT
  Sex: Male
  Weight: 24.4 kg

DRUGS (2)
  1. ELAPRASE   (IDURSULFASE) CONCENTRATE FOR SOLUTION  INFUSION [Suspect]
     Indication: MUCOPOLYSACCHARIDOSIS II
     Dosage: IV DRIP
     Route: 041
     Dates: start: 20080501
  2. BEROTEC [Concomitant]

REACTIONS (3)
  - BRONCHITIS BACTERIAL [None]
  - INFUSION RELATED REACTION [None]
  - OEDEMA [None]
